FAERS Safety Report 7634861 (Version 3)
Quarter: 2017Q2

REPORT INFORMATION
  Report Type: Spontaneous
  Country: US (occurrence: US)
  Receive Date: 20101020
  Receipt Date: 20170420
  Transmission Date: 20170830
  Serious: Yes (Other)
  Sender: FDA-Public Use
  Company Number: US-ROCHE-718739

PATIENT
  Sex: Male
  Weight: 74.8 kg

DRUGS (2)
  1. ACCUTANE [Suspect]
     Active Substance: ISOTRETINOIN
     Indication: ACNE
     Route: 065
     Dates: start: 199402, end: 199408
  2. ALBUTEROL. [Concomitant]
     Active Substance: ALBUTEROL
     Indication: ASTHMA

REACTIONS (4)
  - Inflammatory bowel disease [Unknown]
  - Colitis [Unknown]
  - Crohn^s disease [Unknown]
  - Gastrointestinal injury [Unknown]

NARRATIVE: CASE EVENT DATE: 1995
